FAERS Safety Report 23773848 (Version 1)
Quarter: 2024Q2

REPORT INFORMATION
  Report Type: Spontaneous
  Country: RU (occurrence: RU)
  Receive Date: 20240423
  Receipt Date: 20240423
  Transmission Date: 20240716
  Serious: Yes (Other)
  Sender: FDA-Public Use
  Company Number: RU-BAYER-2023A162811

PATIENT
  Sex: Female

DRUGS (1)
  1. DROSPIRENONE\ETHINYL ESTRADIOL\LEVOMEFOLATE CALCIUM [Suspect]
     Active Substance: DROSPIRENONE\ETHINYL ESTRADIOL\LEVOMEFOLATE CALCIUM
     Indication: Contraception
     Dosage: 1 DF, QD
     Route: 048
     Dates: start: 202310, end: 202311

REACTIONS (5)
  - Pregnancy on oral contraceptive [Recovered/Resolved]
  - Abortion missed [None]
  - Haemorrhage in pregnancy [None]
  - Drug ineffective [None]
  - Anaemia [None]

NARRATIVE: CASE EVENT DATE: 20231101
